FAERS Safety Report 10422095 (Version 1)
Quarter: 2014Q3

REPORT INFORMATION
  Report Type: Spontaneous
  Country: US (occurrence: US)
  Receive Date: 20140901
  Receipt Date: 20140901
  Transmission Date: 20150326
  Serious: No
  Sender: FDA-Public Use
  Company Number: US-SA-2014SA020836

PATIENT
  Age: 65 Year
  Sex: Female

DRUGS (7)
  1. AVAPRO [Suspect]
     Active Substance: IRBESARTAN
     Indication: FLUID RETENTION
     Route: 048
  2. AVAPRO [Suspect]
     Active Substance: IRBESARTAN
     Indication: FLUID RETENTION
     Route: 048
  3. AVAPRO [Suspect]
     Active Substance: IRBESARTAN
     Indication: DIABETES MELLITUS
     Route: 048
  4. AVAPRO [Suspect]
     Active Substance: IRBESARTAN
     Indication: BLOOD PRESSURE
     Route: 048
  5. AVAPRO [Suspect]
     Active Substance: IRBESARTAN
     Indication: DIABETES MELLITUS
     Route: 048
  6. AVAPRO [Suspect]
     Active Substance: IRBESARTAN
     Indication: BLOOD PRESSURE
     Route: 048
  7. SPIRONOLACTONE. [Concomitant]
     Active Substance: SPIRONOLACTONE
     Route: 065

REACTIONS (4)
  - Therapeutic response changed [Unknown]
  - Weight increased [Not Recovered/Not Resolved]
  - Weight decreased [Unknown]
  - Drug ineffective [Unknown]
